FAERS Safety Report 9265911 (Version 1)
Quarter: 2013Q2

REPORT INFORMATION
  Report Type: Spontaneous
  Country: US (occurrence: US)
  Receive Date: 20130501
  Receipt Date: 20130501
  Transmission Date: 20140414
  Serious: Yes (Other)
  Sender: FDA-Public Use
  Company Number: CHPA2013US007314

PATIENT
  Age: 79 Year
  Sex: Female

DRUGS (3)
  1. VOLTAREN GEL [Suspect]
     Indication: ANALGESIC THERAPY
     Dosage: UNK, QD-BID
     Route: 061
     Dates: start: 2005
  2. FLECTOR PATCHES [Suspect]
     Dosage: UNK, UNK
  3. TRAMADOL [Concomitant]
     Dosage: UNK, UNK

REACTIONS (5)
  - Road traffic accident [Unknown]
  - Arthropathy [Unknown]
  - Off label use [Unknown]
  - Drug administered at inappropriate site [Unknown]
  - Wrong technique in drug usage process [Unknown]
